FAERS Safety Report 4350065-0 (Version None)
Quarter: 2004Q2

REPORT INFORMATION
  Report Type: 
  Country: None (occurrence: None)
  Receive Date: 20040429
  Receipt Date: 20040318
  Transmission Date: 20050107
  Serious: Yes (Disabling)
  Sender: FDA-Public Use
  Company Number: US-MERCK-0403USA01641

PATIENT
  Age: 59 Year
  Sex: Female
  Weight: 81 kg

DRUGS (7)
  1. ASCORBIC ACID [Concomitant]
     Route: 065
  2. CYANOCOBALAMIN [Concomitant]
     Route: 065
  3. EICOSAPENTAENOIC ACID [Concomitant]
     Route: 065
  4. ZETIA [Suspect]
     Indication: BLOOD CHOLESTEROL INCREASED
     Route: 048
     Dates: start: 20031110, end: 20040112
  5. ZETIA [Suspect]
     Indication: DYSLIPIDAEMIA
     Route: 048
     Dates: start: 20031110, end: 20040112
  6. VITAMIN E [Concomitant]
     Route: 065
  7. VITAMINS (UNSPECIFIED) [Concomitant]
     Route: 065

REACTIONS (3)
  - GASTRIC DISORDER [None]
  - MYALGIA [None]
  - PAIN IN EXTREMITY [None]
